FAERS Safety Report 21992149 (Version 1)
Quarter: 2023Q1

REPORT INFORMATION
  Report Type: Spontaneous
  Country: US (occurrence: US)
  Receive Date: 20230214
  Receipt Date: 20230214
  Transmission Date: 20230417
  Serious: Yes (Other)
  Sender: FDA-Public Use
  Company Number: US-BIOVITRUM-2023US02248

PATIENT
  Sex: Male
  Weight: 5 kg

DRUGS (3)
  1. SYNAGIS [Suspect]
     Active Substance: PALIVIZUMAB
     Indication: Premature baby
     Dosage: INJECT 15MG/KG INTO THE MUSCLE
  2. SYNAGIS [Suspect]
     Active Substance: PALIVIZUMAB
     Indication: Congenital cardiovascular anomaly
  3. SYNAGIS [Suspect]
     Active Substance: PALIVIZUMAB
     Indication: Cardiac failure

REACTIONS (1)
  - Cerebrovascular accident [Unknown]
